FAERS Safety Report 10355375 (Version 1)
Quarter: 2014Q3

REPORT INFORMATION
  Report Type: Spontaneous
  Country: US (occurrence: None)
  Receive Date: 20140729
  Receipt Date: 20140729
  Transmission Date: 20150326
  Serious: Yes (Other)
  Sender: FDA-Public Use
  Company Number: 2014-US-009024

PATIENT
  Sex: Female

DRUGS (2)
  1. XYREM [Suspect]
     Active Substance: SODIUM OXYBATE
     Indication: CATAPLEXY
     Route: 048
     Dates: start: 201008
  2. XYREM [Suspect]
     Active Substance: SODIUM OXYBATE
     Indication: NARCOLEPSY
     Route: 048
     Dates: start: 201008

REACTIONS (5)
  - Wisdom teeth removal [None]
  - Ingrown hair [None]
  - Neoplasm [None]
  - Colonoscopy [None]
  - Unwanted awareness during anaesthesia [None]

NARRATIVE: CASE EVENT DATE: 2011
